FAERS Safety Report 9502645 (Version 1)
Quarter: 2013Q3

REPORT INFORMATION
  Report Type: Spontaneous
  Country: GB (occurrence: GB)
  Receive Date: 20130906
  Receipt Date: 20130906
  Transmission Date: 20140515
  Serious: Yes (Other)
  Sender: FDA-Public Use
  Company Number: GB-ACCORD-019196

PATIENT
  Age: 65 Year
  Sex: Male
  Weight: 85 kg

DRUGS (1)
  1. AMLODIPINE [Suspect]
     Indication: HYPERTENSION
     Route: 048
     Dates: start: 20130812, end: 20130816

REACTIONS (1)
  - Pain in extremity [Recovering/Resolving]
